FAERS Safety Report 7900019-X (Version None)
Quarter: 2011Q4

REPORT INFORMATION
  Report Type: 
  Country: None (occurrence: None)
  Receive Date: 20111108
  Receipt Date: 20111027
  Transmission Date: 20120403
  Serious: Yes (Hospitalization)
  Sender: FDA-Public Use
  Company Number: US-BRISTOL-MYERS SQUIBB COMPANY-16096752

PATIENT
  Age: 63 Year
  Sex: Female

DRUGS (6)
  1. BLINDED: SAXAGLIPTIN [Suspect]
     Indication: TYPE 2 DIABETES MELLITUS
     Dates: start: 20101009
  2. NIACIN [Concomitant]
  3. GLYBURIDE [Suspect]
     Indication: TYPE 2 DIABETES MELLITUS
  4. METFORMIN HCL [Suspect]
     Indication: TYPE 2 DIABETES MELLITUS
  5. BLINDED: PLACEBO [Suspect]
     Indication: TYPE 2 DIABETES MELLITUS
     Dates: start: 20101009
  6. ASPIRIN [Concomitant]

REACTIONS (3)
  - HYPOGLYCAEMIA [None]
  - ATAXIA [None]
  - VISUAL IMPAIRMENT [None]
